FAERS Safety Report 6243916-6 (Version None)
Quarter: 2009Q2

REPORT INFORMATION
  Report Type: 
  Country: None (occurrence: None)
  Receive Date: 20090623
  Receipt Date: 20090608
  Transmission Date: 20091009
  Serious: Yes (Other)
  Sender: FDA-Public Use
  Company Number: 238096J08USA

PATIENT
  Age: 60 Year
  Sex: Female
  Weight: 68 kg

DRUGS (10)
  1. REBIF [Suspect]
     Indication: MULTIPLE SCLEROSIS
     Dosage: 44 MCG, 3 IN 1 WEEKS, SUBCUTANEOUS
     Route: 058
     Dates: start: 20060531, end: 20090420
  2. PREMARIN [Concomitant]
  3. BUSPAR [Concomitant]
  4. TRAMADOL [Concomitant]
  5. ASPIRIN [Concomitant]
  6. ZOLOFT [Concomitant]
  7. ZANAFLEX [Concomitant]
  8. NAPROXEN [Concomitant]
  9. XANAX [Concomitant]
  10. PROVIGIL [Concomitant]

REACTIONS (9)
  - BACK PAIN [None]
  - CHILLS [None]
  - CONDITION AGGRAVATED [None]
  - FATIGUE [None]
  - HYPERTENSION [None]
  - LOSS OF CONSCIOUSNESS [None]
  - MULTIPLE SCLEROSIS [None]
  - ORTHOSTATIC HYPOTENSION [None]
  - PYREXIA [None]
